FAERS Safety Report 9726000 (Version 1)
Quarter: 2013Q4

REPORT INFORMATION
  Report Type: Spontaneous
  Country: US (occurrence: US)
  Receive Date: 20131203
  Receipt Date: 20131203
  Transmission Date: 20140711
  Serious: Yes (Other)
  Sender: FDA-Public Use
  Company Number: US-SA-2013SA125080

PATIENT
  Sex: 0

DRUGS (1)
  1. AMBIEN [Suspect]
     Route: 065

REACTIONS (1)
  - Sexual abuse [Unknown]
